FAERS Safety Report 5741558-X (Version None)
Quarter: 2008Q2

REPORT INFORMATION
  Report Type: 
  Country: None (occurrence: None)
  Receive Date: 20080519
  Receipt Date: 20080324
  Transmission Date: 20081010
  Serious: No
  Sender: FDA-Public Use
  Company Number: US-BAYER-200715268NA

PATIENT
  Age: 63 Year
  Sex: Male
  Weight: 113 kg

DRUGS (4)
  1. MAGNEVIST [Suspect]
     Indication: NUCLEAR MAGNETIC RESONANCE IMAGING ABDOMINAL
     Dosage: TOTAL DAILY DOSE: 20 ML  UNIT DOSE: 20 ML
     Route: 042
     Dates: start: 20071127, end: 20071127
  2. THYROID TAB [Concomitant]
  3. PROPECIA [Concomitant]
  4. TESTOSTERONE GH [Concomitant]

REACTIONS (2)
  - GAIT DISTURBANCE [None]
  - MUSCLE TIGHTNESS [None]
